FAERS Safety Report 12833630 (Version 1)
Quarter: 2016Q4

REPORT INFORMATION
  Report Type: Report from Study
  Country: US (occurrence: US)
  Receive Date: 20161010
  Receipt Date: 20161010
  Transmission Date: 20170207
  Serious: Yes (Other)
  Sender: FDA-Public Use
  Company Number: US-GILEAD-2016-0231931

PATIENT
  Age: 54 Year
  Sex: Female

DRUGS (1)
  1. SOFOSBUVIR W/VELPATASVIR [Suspect]
     Active Substance: SOFOSBUVIR\VELPATASVIR
     Indication: CHRONIC HEPATITIS C
     Dosage: 1 DF, QD
     Route: 048
     Dates: start: 20160829

REACTIONS (14)
  - Arthralgia [Unknown]
  - Feeling abnormal [Unknown]
  - Paraesthesia [Unknown]
  - Headache [Recovered/Resolved]
  - Thyroid disorder [Unknown]
  - Anxiety [Unknown]
  - Stress [Unknown]
  - Hunger [Unknown]
  - Amnesia [Unknown]
  - Pain [Unknown]
  - Restlessness [Unknown]
  - Chronic kidney disease [Unknown]
  - Renal failure [Unknown]
  - Depression [Unknown]
